FAERS Safety Report 7629098-4 (Version None)
Quarter: 2011Q3

REPORT INFORMATION
  Report Type: 
  Country: None (occurrence: None)
  Receive Date: 20110722
  Receipt Date: 20110722
  Transmission Date: 20111222
  Serious: Yes (Life-Threatening, Disabling)
  Sender: FDA-Public Use
  Company Number: None

PATIENT
  Sex: Male
  Weight: 90.718 kg

DRUGS (2)
  1. CITALOPRAM HYDROBROMIDE [Suspect]
     Indication: MAJOR DEPRESSION
     Dosage: 40MG
     Route: 048
  2. BUSPIRONE HCL [Concomitant]
     Indication: ANXIETY DISORDER
     Dosage: 15MG
     Route: 048

REACTIONS (10)
  - CONFUSIONAL STATE [None]
  - MYDRIASIS [None]
  - DRUG INTERACTION [None]
  - SEROTONIN SYNDROME [None]
  - MUSCLE RIGIDITY [None]
  - HYPERHIDROSIS [None]
  - HYPERTHERMIA [None]
  - ATAXIA [None]
  - ALTERED STATE OF CONSCIOUSNESS [None]
  - TREMOR [None]
